FAERS Safety Report 5575168-4 (Version None)
Quarter: 2007Q4

REPORT INFORMATION
  Report Type: 
  Country: None (occurrence: None)
  Receive Date: 20071227
  Receipt Date: 20071218
  Transmission Date: 20080405
  Serious: Yes (Other)
  Sender: FDA-Public Use
  Company Number: US-PFIZER INC-2007107440

PATIENT
  Sex: Male
  Weight: 77.3 kg

DRUGS (6)
  1. CHANTIX [Suspect]
     Indication: SMOKING CESSATION THERAPY
     Route: 048
  2. THIORIDAZINE [Concomitant]
     Route: 048
  3. FISH OIL [Concomitant]
     Route: 048
  4. GLIPIZIDE [Concomitant]
     Route: 048
  5. METFORMIN HCL [Concomitant]
     Route: 048
  6. DIAZEPAM [Concomitant]
     Route: 048

REACTIONS (2)
  - LUNG OPERATION [None]
  - SLEEP DISORDER [None]
